FAERS Safety Report 19995128 (Version 1)
Quarter: 2021Q4

REPORT INFORMATION
  Report Type: Spontaneous
  Country: US (occurrence: US)
  Receive Date: 20211023
  Receipt Date: 20211023
  Transmission Date: 20220303
  Serious: Yes (Death)
  Sender: FDA-Public Use
  Company Number: None

PATIENT
  Age: 66 Year
  Sex: Male

DRUGS (5)
  1. REVLIMID [Suspect]
     Active Substance: LENALIDOMIDE
     Indication: Plasma cell myeloma
     Dosage: ?          OTHER FREQUENCY:QD X21/28D;
     Route: 048
     Dates: start: 20120822, end: 20210811
  2. Acyclovir (ZOVIRAX) [Concomitant]
  3. PRADAXA [Concomitant]
     Active Substance: DABIGATRAN ETEXILATE MESYLATE
  4. Glipizide (GLUCOTROL) [Concomitant]
  5. FLOMAX [Concomitant]
     Active Substance: TAMSULOSIN HYDROCHLORIDE

REACTIONS (10)
  - Blood potassium decreased [None]
  - Agitation [None]
  - Confusional state [None]
  - Fall [None]
  - Disease recurrence [None]
  - Hemiplegia [None]
  - Subdural haematoma [None]
  - Brain oedema [None]
  - Cerebral venous sinus thrombosis [None]
  - Cardiac arrest [None]

NARRATIVE: CASE EVENT DATE: 20210829
